FAERS Safety Report 16705762 (Version 1)
Quarter: 2019Q3

REPORT INFORMATION
  Report Type: Spontaneous
  Country: JP (occurrence: JP)
  Receive Date: 20190815
  Receipt Date: 20190815
  Transmission Date: 20191004
  Serious: Yes (Other)
  Sender: FDA-Public Use
  Company Number: JP-PFIZER INC-2019296854

PATIENT
  Age: 38 Year
  Sex: Female

DRUGS (3)
  1. CELECOX [Suspect]
     Active Substance: CELECOXIB
     Indication: PERIARTHRITIS
     Dosage: 200 MG, DAILY
     Route: 048
     Dates: start: 20190620, end: 20190708
  2. MUCOSTA [Concomitant]
     Active Substance: REBAMIPIDE
     Dosage: UNK
  3. MYONAL [EPERISONE HYDROCHLORIDE] [Concomitant]
     Active Substance: EPERISONE HYDROCHLORIDE
     Dosage: UNK

REACTIONS (1)
  - Pituitary amenorrhoea [Not Recovered/Not Resolved]

NARRATIVE: CASE EVENT DATE: 20190710
